FAERS Safety Report 21929820 (Version 3)
Quarter: 2024Q1

REPORT INFORMATION
  Report Type: Spontaneous
  Country: US (occurrence: US)
  Receive Date: 20230131
  Receipt Date: 20240212
  Transmission Date: 20240410
  Serious: No
  Sender: FDA-Public Use
  Company Number: US-BIOGEN-2022BI01148022

PATIENT
  Age: 61 Year
  Sex: Male

DRUGS (8)
  1. AVONEX [Suspect]
     Active Substance: INTERFERON BETA-1A
     Indication: Relapsing-remitting multiple sclerosis
     Dosage: INJECT 1 PREFILLED SYRINGE (30 MCG) INTRAMUSCULARLY ONCE WEEKLY
     Route: 050
  2. AVONEX [Suspect]
     Active Substance: INTERFERON BETA-1A
  3. AVONEX [Suspect]
     Active Substance: INTERFERON BETA-1A
  4. AVONEX [Suspect]
     Active Substance: INTERFERON BETA-1A
  5. ROSUVASTATIN CALCIUM [Concomitant]
     Active Substance: ROSUVASTATIN CALCIUM
     Route: 050
  6. ASPIRIN CHILD [Concomitant]
     Route: 050
  7. VITAMIN D [Concomitant]
     Active Substance: VITAMIN D NOS
     Indication: Product used for unknown indication
  8. CALCIUM [Concomitant]
     Active Substance: CALCIUM
     Indication: Product used for unknown indication

REACTIONS (11)
  - Product dose omission in error [Unknown]
  - Intentional product misuse [Unknown]
  - Tremor [Unknown]
  - Fall [Recovered/Resolved]
  - Gait disturbance [Unknown]
  - Hemiparesis [Unknown]
  - Foot fracture [Unknown]
  - Hepatic enzyme increased [Unknown]
  - Injection site haemorrhage [Unknown]
  - Feeling hot [Unknown]
  - Influenza like illness [Unknown]

NARRATIVE: CASE EVENT DATE: 20231201
